FAERS Safety Report 8206031-8 (Version None)
Quarter: 2012Q1

REPORT INFORMATION
  Report Type: 
  Country: None (occurrence: None)
  Receive Date: 20120309
  Receipt Date: 20120302
  Transmission Date: 20120608
  Serious: Yes (Other)
  Sender: FDA-Public Use
  Company Number: 2012SP009175

PATIENT
  Sex: Female

DRUGS (1)
  1. IMPLANON [Suspect]
     Indication: CONTRACEPTION
     Dates: start: 20100501, end: 20120215

REACTIONS (5)
  - NAUSEA [None]
  - MALAISE [None]
  - PREGNANCY WITH IMPLANT CONTRACEPTIVE [None]
  - ABORTION SPONTANEOUS [None]
  - BREAST PAIN [None]
